FAERS Safety Report 16894090 (Version 3)
Quarter: 2020Q1

REPORT INFORMATION
  Report Type: Spontaneous
  Country: CA (occurrence: CA)
  Receive Date: 20191008
  Receipt Date: 20200318
  Transmission Date: 20200409
  Serious: Yes (Other)
  Sender: FDA-Public Use
  Company Number: CA-PFIZER INC-2019426731

PATIENT
  Age: 40 Year
  Sex: Female

DRUGS (10)
  1. ADRIAMYCIN [Suspect]
     Active Substance: DOXORUBICIN HYDROCHLORIDE
     Indication: LUNG NEOPLASM MALIGNANT
  2. IFEX [Suspect]
     Active Substance: IFOSFAMIDE
     Indication: LUNG NEOPLASM MALIGNANT
  3. UROMITEXAN [Suspect]
     Active Substance: MESNA
     Indication: LUNG NEOPLASM MALIGNANT
  4. UROMITEXAN [Suspect]
     Active Substance: MESNA
     Indication: SYNOVIAL SARCOMA
     Dosage: 100 MG/ML
     Route: 042
  5. ADRIAMYCIN [Suspect]
     Active Substance: DOXORUBICIN HYDROCHLORIDE
     Indication: SYNOVIAL SARCOMA
     Dosage: UNK
     Route: 065
  6. ADRIAMYCIN [Suspect]
     Active Substance: DOXORUBICIN HYDROCHLORIDE
     Indication: CHEMOTHERAPY
  7. UROMITEXAN [Suspect]
     Active Substance: MESNA
     Indication: CHEMOTHERAPY
  8. LOW-MOLECULAR-WEIGHT HEPARIN CALCIUM [Concomitant]
     Active Substance: HEPARIN CALCIUM
     Indication: PULMONARY EMBOLISM
     Dosage: UNK
  9. IFEX [Suspect]
     Active Substance: IFOSFAMIDE
     Indication: SYNOVIAL SARCOMA
     Dosage: 3 G, UNK (3 G/VIAL)
     Route: 042
  10. IFEX [Suspect]
     Active Substance: IFOSFAMIDE
     Indication: CHEMOTHERAPY

REACTIONS (1)
  - Vascular pseudoaneurysm [Recovering/Resolving]
